FAERS Safety Report 15306618 (Version 1)
Quarter: 2018Q3

REPORT INFORMATION
  Report Type: Spontaneous
  Country: US (occurrence: US)
  Receive Date: 20180810
  Receipt Date: 20180810
  Transmission Date: 20181010
  Serious: Yes (Disabling, Other)
  Sender: FDA-Public Use
  Company Number: None

PATIENT
  Age: 60 Year
  Sex: Male
  Weight: 157.5 kg

DRUGS (22)
  1. ANASTROZOLE. [Concomitant]
     Active Substance: ANASTROZOLE
  2. OXYCODONE 15MG TAB. GENERIC FOR: ROXICODONE 15MG TAB [Suspect]
     Active Substance: OXYCODONE
     Indication: PAIN
     Dosage: ?          QUANTITY:84 TABLET(S);?
     Route: 048
     Dates: start: 20180724, end: 20180810
  3. SIMPONI [Concomitant]
     Active Substance: GOLIMUMAB
  4. METHOTREXATE. [Concomitant]
     Active Substance: METHOTREXATE
  5. CARVEDILOL. [Concomitant]
     Active Substance: CARVEDILOL
  6. VITAMIND2 [Concomitant]
  7. ASPIRIN. [Concomitant]
     Active Substance: ASPIRIN
  8. MOVANTIC [Concomitant]
  9. HYDROXYCHLOROQUINE [Concomitant]
     Active Substance: HYDROXYCHLOROQUINE
  10. GABAPENTIN. [Concomitant]
     Active Substance: GABAPENTIN
  11. ACETAMINOPHEN. [Concomitant]
     Active Substance: ACETAMINOPHEN
  12. LEVOTHYROXINE. [Concomitant]
     Active Substance: LEVOTHYROXINE
  13. CLONAZEPAM. [Concomitant]
     Active Substance: CLONAZEPAM
  14. VALSARTEN/HCTZ [Concomitant]
  15. MUCINEX [Concomitant]
     Active Substance: GUAIFENESIN
  16. MORPHINE SULFATE ER [Concomitant]
     Active Substance: MORPHINE SULFATE
  17. ATORVASTATIN [Concomitant]
     Active Substance: ATORVASTATIN
  18. MELOXICAM. [Concomitant]
     Active Substance: MELOXICAM
  19. FOLIC ACID. [Concomitant]
     Active Substance: FOLIC ACID
  20. TAMSULOSIN HCL [Concomitant]
     Active Substance: TAMSULOSIN HYDROCHLORIDE
  21. EXCEDERIN [Concomitant]
  22. STOP PAIN TOPICAL SPRAY [Concomitant]

REACTIONS (4)
  - Rash pruritic [None]
  - Product substitution issue [None]
  - Rash [None]
  - Drug ineffective [None]

NARRATIVE: CASE EVENT DATE: 20180724
